FAERS Safety Report 8823580 (Version 1)
Quarter: 2012Q4

REPORT INFORMATION
  Report Type: 
  Country: US (occurrence: US)
  Receive Date: 20121003
  Receipt Date: 20121003
  Transmission Date: 20130627
  Serious: No
  Sender: FDA-Public Use
  Company Number: US-VERTEX PHARMACEUTICAL INC.-2012-021053

PATIENT
  Age: 55 Year
  Sex: Female
  Weight: 91 kg

DRUGS (4)
  1. INCIVEK [Suspect]
     Indication: HEPATITIS C
     Dosage: 750 mg, tid
     Route: 048
     Dates: start: 20120820
  2. PEGASYS [Suspect]
     Indication: HEPATITIS C
     Dosage: 180 ?g, UNK
     Route: 058
     Dates: start: 20120819
  3. RIBAVIRIN [Suspect]
     Indication: HEPATITIS C
     Dosage: 1000 mg, qd
     Route: 048
     Dates: start: 20120820
  4. ADVAIR HFA [Concomitant]
     Indication: ASTHMA
     Dosage: 250/50 mgs
     Route: 048

REACTIONS (1)
  - Rash pruritic [Not Recovered/Not Resolved]
